FAERS Safety Report 6442454-5 (Version None)
Quarter: 2009Q4

REPORT INFORMATION
  Report Type: 
  Country: None (occurrence: None)
  Receive Date: 20091112
  Receipt Date: 20091028
  Transmission Date: 20100525
  Serious: Yes (Hospitalization)
  Sender: FDA-Public Use
  Company Number: 2009110010

PATIENT
  Age: 74 Year
  Sex: Male

DRUGS (10)
  1. TORSEMIDE [Suspect]
     Dosage: 10 MG, 1 IN 2 D, ORAL
     Route: 048
     Dates: end: 20090304
  2. ENALAPRIL MALEATE [Suspect]
     Dosage: 10 MG, 1 IN 1 2 D, ORAL
     Route: 048
     Dates: end: 20090304
  3. SINTROM [Concomitant]
  4. PLAVIX [Concomitant]
  5. CORDARONE [Concomitant]
  6. LEVOTHYROXINE SODIUM [Concomitant]
  7. DILATREND (CARVEDIOLOL) [Concomitant]
  8. ATORVASTATIN CALCIUM [Concomitant]
  9. LANTUS [Concomitant]
  10. AMARYL [Concomitant]

REACTIONS (7)
  - CARDIAC OUTPUT DECREASED [None]
  - CONDITION AGGRAVATED [None]
  - DYSPNOEA [None]
  - HYPERKALAEMIA [None]
  - RENAL FAILURE CHRONIC [None]
  - UNEVALUABLE EVENT [None]
  - WEIGHT DECREASED [None]
